FAERS Safety Report 11969853 (Version 20)
Quarter: 2022Q2

REPORT INFORMATION
  Report Type: Report from Study
  Country: BR (occurrence: BR)
  Receive Date: 20160128
  Receipt Date: 20220628
  Transmission Date: 20220721
  Serious: Yes (Other)
  Sender: FDA-Public Use
  Company Number: BR-GLAXOSMITHKLINE INC.-BR2015GSK129520

PATIENT

DRUGS (5)
  1. BELIMUMAB [Suspect]
     Active Substance: BELIMUMAB
     Indication: Systemic lupus erythematosus
     Dosage: 780 MG
     Dates: start: 20150626
  2. BELIMUMAB [Suspect]
     Active Substance: BELIMUMAB
     Dosage: 120 MG
     Dates: start: 20150626
  3. TOPIRAMATE [Suspect]
     Active Substance: TOPIRAMATE
     Indication: Product used for unknown indication
     Dosage: UNK
  4. INFLUENZA VIRUS VACCINE [Concomitant]
     Active Substance: INFLUENZA VIRUS VACCINE
     Indication: Prophylaxis
     Dosage: UNK
     Dates: start: 20170606
  5. AMOXICILLIN [Concomitant]
     Active Substance: AMOXICILLIN
     Indication: Product used for unknown indication
     Dosage: UNK

REACTIONS (12)
  - Blindness transient [Unknown]
  - Immunosuppression [Unknown]
  - Pneumonia [Recovered/Resolved]
  - Pain of skin [Unknown]
  - Pharyngitis [Unknown]
  - Pulmonary mass [Not Recovered/Not Resolved]
  - Weight increased [Unknown]
  - Amnesia [Unknown]
  - Product availability issue [Unknown]
  - Product dose omission issue [Unknown]
  - Inappropriate schedule of product administration [Unknown]
  - Circumstance or information capable of leading to medication error [Unknown]
